FAERS Safety Report 5658322-2 (Version None)
Quarter: 2008Q1

REPORT INFORMATION
  Report Type: 
  Country: None (occurrence: None)
  Receive Date: 20080310
  Receipt Date: 20070126
  Transmission Date: 20080703
  Serious: No
  Sender: FDA-Public Use
  Company Number: US-BAYER-200710312BCC

PATIENT
  Age: 91 Year
  Sex: Female
  Weight: 54 kg

DRUGS (12)
  1. ALEVE [Suspect]
     Indication: PAIN
     Dosage: TOTAL DAILY DOSE: 220 MG  UNIT DOSE: 220 MG
     Route: 048
     Dates: start: 20061101
  2. ALEVE [Suspect]
     Dosage: TOTAL DAILY DOSE: 440 MG  UNIT DOSE: 220 MG
     Route: 048
     Dates: start: 20070125
  3. PROVIGIL [Concomitant]
  4. SYNTHROID [Concomitant]
  5. LUNESTA [Concomitant]
  6. CLONAZEPAM [Concomitant]
  7. FERROUS SULFATE TAB [Concomitant]
  8. WESTERN FAMILY STOOL SOFTENER [Concomitant]
  9. CALCIUM [Concomitant]
  10. CENTRUM [Concomitant]
  11. GLYCOLAX [Concomitant]
  12. PRILOSEC [Concomitant]

REACTIONS (2)
  - ENERGY INCREASED [None]
  - PAIN [None]
